FAERS Safety Report 9695653 (Version 2)
Quarter: 2014Q1

REPORT INFORMATION
  Report Type: Spontaneous
  Country: IT (occurrence: IT)
  Receive Date: 20131119
  Receipt Date: 20140331
  Transmission Date: 20141002
  Serious: Yes (Hospitalization, Other)
  Sender: FDA-Public Use
  Company Number: IT-PFIZER INC-2013326452

PATIENT
  Age: 67 Year
  Sex: Male

DRUGS (7)
  1. ZOLOFT [Suspect]
     Indication: DEPRESSION
     Dosage: 50 MG, DAILY (1 DF)
     Route: 048
     Dates: start: 20130101, end: 20131011
  2. DINTOINA [Suspect]
     Indication: EPILEPSY
     Dosage: 100 MG, DAILY (3.5 DF, 1 +1/4 +1 +1 +1/4 TABLETS)
     Route: 048
     Dates: start: 20130101, end: 20131011
  3. SELOKEN [Concomitant]
     Indication: HYPERTENSION
     Dosage: 25 MG, UNK
  4. TRIATEC [Concomitant]
     Indication: HYPERTENSION
     Dosage: 2 DF, UNK
  5. OLPRESS [Concomitant]
     Indication: HYPERTENSION
     Dosage: 1 DF, UNK
  6. PANTORC [Concomitant]
     Indication: ULCER
     Dosage: 1 DF, UNK
     Route: 048
  7. SINVACOR [Concomitant]
     Indication: HYPERCHOLESTEROLAEMIA
     Dosage: 1 DF, UNK
     Route: 048

REACTIONS (6)
  - Overdose [Unknown]
  - Tremor [Recovered/Resolved]
  - Vomiting [Recovered/Resolved]
  - Mean cell volume increased [Unknown]
  - C-reactive protein increased [Unknown]
  - Drug level increased [Unknown]
